APPROVED DRUG PRODUCT: OMEPRAZOLE AND SODIUM BICARBONATE
Active Ingredient: OMEPRAZOLE; SODIUM BICARBONATE
Strength: 20MG/PACKET;1.68GM/PACKET
Dosage Form/Route: FOR SUSPENSION;ORAL
Application: A079182 | Product #001 | TE Code: AB
Applicant: STRIDES PHARMA INTERNATIONAL AG
Approved: Apr 19, 2013 | RLD: No | RS: No | Type: RX